FAERS Safety Report 5396427-4 (Version None)
Quarter: 2007Q3

REPORT INFORMATION
  Report Type: 
  Country: None (occurrence: None)
  Receive Date: 20070725
  Receipt Date: 20070711
  Transmission Date: 20080115
  Serious: Yes (Hospitalization)
  Sender: FDA-Public Use
  Company Number: US-ELI_LILLY_AND_COMPANY-US200707002901

PATIENT
  Age: 82 Year
  Sex: Female

DRUGS (1)
  1. FORTEO [Suspect]
     Dosage: 20 UG, DAILY (1/D)
     Dates: start: 20070109

REACTIONS (6)
  - BALANCE DISORDER [None]
  - FALL [None]
  - GASTROENTERITIS VIRAL [None]
  - HAEMOGLOBIN DECREASED [None]
  - HEAD INJURY [None]
  - SOMNOLENCE [None]
